FAERS Safety Report 5925431-X (Version None)
Quarter: 2008Q3

REPORT INFORMATION
  Report Type: 
  Country: None (occurrence: None)
  Receive Date: 20080909
  Receipt Date: 20080304
  Transmission Date: 20090109
  Serious: Yes (Other)
  Sender: FDA-Public Use
  Company Number: 163-20785-08030210

PATIENT
  Age: 37 Year
  Sex: Female

DRUGS (1)
  1. THALOMID [Suspect]
     Indication: CASTLEMAN'S DISEASE
     Dosage: 100 MG, DAILY, ORAL
     Route: 048
     Dates: start: 20060701, end: 20071101

REACTIONS (1)
  - THROMBOSIS [None]
